FAERS Safety Report 8130009-6 (Version None)
Quarter: 2012Q1

REPORT INFORMATION
  Report Type: 
  Country: None (occurrence: None)
  Receive Date: 20120210
  Receipt Date: 20120201
  Transmission Date: 20120608
  Serious: Yes (Other)
  Sender: FDA-Public Use
  Company Number: US-ABBOTT-12P-163-0900420-00

PATIENT
  Sex: Female

DRUGS (3)
  1. HUMIRA [Suspect]
  2. HUMIRA [Suspect]
     Dates: end: 20111101
  3. HUMIRA [Suspect]
     Indication: RHEUMATOID ARTHRITIS
     Dates: start: 20111101

REACTIONS (4)
  - RHEUMATOID ARTHRITIS [None]
  - ARTHRITIS [None]
  - BUNION [None]
  - PAIN IN EXTREMITY [None]
